FAERS Safety Report 23412736 (Version 1)
Quarter: 2024Q1

REPORT INFORMATION
  Report Type: Spontaneous
  Country: US (occurrence: US)
  Receive Date: 20240117
  Receipt Date: 20240117
  Transmission Date: 20240410
  Serious: No
  Sender: FDA-Public Use
  Company Number: US-NOVOPROD-1105844

PATIENT
  Age: 71 Year
  Sex: Female

DRUGS (3)
  1. OZEMPIC [Suspect]
     Active Substance: SEMAGLUTIDE
     Indication: Type 2 diabetes mellitus
     Dosage: 0.25 MG, QW
     Route: 058
     Dates: start: 20230511, end: 20230511
  2. OZEMPIC [Suspect]
     Active Substance: SEMAGLUTIDE
     Dosage: 0.25 MG, QW
     Route: 058
     Dates: start: 20230511, end: 20230511
  3. OZEMPIC [Suspect]
     Active Substance: SEMAGLUTIDE
     Dosage: 0.25 MG, QW
     Route: 058
     Dates: start: 20230511, end: 20230511

REACTIONS (5)
  - Asthenia [Recovered/Resolved]
  - Nausea [Recovered/Resolved]
  - Vomiting [Recovered/Resolved]
  - Eructation [Recovered/Resolved]
  - Abdominal discomfort [Recovered/Resolved]

NARRATIVE: CASE EVENT DATE: 20230511
